FAERS Safety Report 10934237 (Version 1)
Quarter: 2015Q1

REPORT INFORMATION
  Report Type: Spontaneous
  Country: UY (occurrence: UY)
  Receive Date: 20150320
  Receipt Date: 20150320
  Transmission Date: 20150721
  Serious: Yes (Other)
  Sender: FDA-Public Use
  Company Number: UY-RANBAXY-2015RR-93675

PATIENT
  Age: 6 Year
  Sex: Male

DRUGS (2)
  1. CEFUROXIME. [Suspect]
     Active Substance: CEFUROXIME
     Indication: ESCHERICHIA URINARY TRACT INFECTION
     Dosage: 150 MG/KG, DAILY
     Route: 042
  2. CEFTRIAXONE. [Suspect]
     Active Substance: CEFTRIAXONE
     Indication: ESCHERICHIA URINARY TRACT INFECTION
     Dosage: 100 MG/KG, DAILY
     Route: 042

REACTIONS (2)
  - Pathogen resistance [Recovering/Resolving]
  - Treatment failure [Recovering/Resolving]
